FAERS Safety Report 14930634 (Version 1)
Quarter: 2018Q2

REPORT INFORMATION
  Report Type: Spontaneous
  Country: US (occurrence: US)
  Receive Date: 20180523
  Receipt Date: 20180523
  Transmission Date: 20180711
  Serious: No
  Sender: FDA-Public Use
  Company Number: US-LEXICON PHARMACEUTICALS, INC-18-1606-00566

PATIENT
  Sex: Female

DRUGS (13)
  1. ZOFRAN [Concomitant]
     Active Substance: ONDANSETRON HYDROCHLORIDE
  2. TELOTRISTAT ETHYL [Suspect]
     Active Substance: TELOTRISTAT ETHYL
     Indication: CARCINOID SYNDROME
     Route: 048
     Dates: start: 20180130
  3. METOPROLOL SUCCINATE. [Concomitant]
     Active Substance: METOPROLOL SUCCINATE
  4. OCTREOTIDE ACETATE. [Concomitant]
     Active Substance: OCTREOTIDE ACETATE
  5. ALLOPURINOL. [Concomitant]
     Active Substance: ALLOPURINOL
  6. CEFDINIR. [Concomitant]
     Active Substance: CEFDINIR
  7. INTRON [Concomitant]
     Active Substance: INTERFERON ALFA-2B
  8. LOMOTIL [Concomitant]
     Active Substance: ATROPINE SULFATE\DIPHENOXYLATE HYDROCHLORIDE
  9. METFORMIN [Concomitant]
     Active Substance: METFORMIN HYDROCHLORIDE
  10. VICTOZA [Concomitant]
     Active Substance: LIRAGLUTIDE
  11. AYR [Concomitant]
  12. COUMADIN [Concomitant]
     Active Substance: WARFARIN SODIUM
  13. HUMALOG [Concomitant]
     Active Substance: INSULIN LISPRO

REACTIONS (3)
  - Headache [Unknown]
  - Fatigue [Unknown]
  - Nausea [Unknown]
